FAERS Safety Report 10083208 (Version 1)
Quarter: 2014Q2

REPORT INFORMATION
  Report Type: Spontaneous
  Country: FR (occurrence: FR)
  Receive Date: 20140417
  Receipt Date: 20140417
  Transmission Date: 20141212
  Serious: Yes (Hospitalization)
  Sender: FDA-Public Use
  Company Number: FR-ROCHE-1385079

PATIENT
  Age: 2 Year
  Sex: Female

DRUGS (13)
  1. XOLAIR [Suspect]
     Indication: BRONCHOPULMONARY ASPERGILLOSIS ALLERGIC
     Dosage: 150 MG IN EACH ARM
     Route: 058
     Dates: start: 20140318, end: 20140318
  2. VITAMIN E [Concomitant]
  3. CREON [Concomitant]
  4. VITAMIN A [Concomitant]
  5. COLIMYCINE [Concomitant]
  6. HYDROCORTISONE [Concomitant]
  7. VENTOLINE [Concomitant]
  8. PARENTERAL NUTRITION [Concomitant]
  9. SOLU-MEDROL [Concomitant]
  10. EMLA [Concomitant]
  11. NITROUS OXIDE [Concomitant]
  12. OXYGEN [Concomitant]
  13. PULMICORT [Concomitant]
     Route: 065
     Dates: start: 201401

REACTIONS (2)
  - Lung disorder [Recovered/Resolved with Sequelae]
  - Pyrexia [Recovering/Resolving]
